FAERS Safety Report 6968563-X (Version None)
Quarter: 2010Q3

REPORT INFORMATION
  Report Type: 
  Country: None (occurrence: None)
  Receive Date: 20100907
  Receipt Date: 20100830
  Transmission Date: 20110219
  Serious: Yes (Other)
  Sender: FDA-Public Use
  Company Number: ES-ROCHE-724794

PATIENT

DRUGS (2)
  1. CAPECITABINE [Suspect]
     Dosage: FREQUENCY: ON DAYS 1 TO 14, DOSE LEVEL IV
     Route: 048
  2. VINORELBINE [Suspect]
     Dosage: FREQUENCY: ON DAYS 1 AND 8, DOSE FORM: SOFT GELATIN CAPSULE, DOSE LEVEL IV
     Route: 048

REACTIONS (2)
  - DRUG TOXICITY [None]
  - INTESTINAL OBSTRUCTION [None]
